FAERS Safety Report 25433124 (Version 1)
Quarter: 2025Q2

REPORT INFORMATION
  Report Type: Report from Study
  Country: GB (occurrence: GB)
  Receive Date: 20250613
  Receipt Date: 20250613
  Transmission Date: 20250717
  Serious: Yes (Death)
  Sender: JOHNSON AND JOHNSON
  Company Number: GB-BAYER-2025A077737

PATIENT
  Age: 63 Year
  Sex: Male

DRUGS (1)
  1. VENTAVIS [Suspect]
     Active Substance: ILOPROST
     Indication: Pulmonary hypertension
     Route: 055
     Dates: start: 20241011, end: 20250509

REACTIONS (1)
  - Death [Fatal]

NARRATIVE: CASE EVENT DATE: 20250509
